FAERS Safety Report 16377678 (Version 3)
Quarter: 2019Q4

REPORT INFORMATION
  Report Type: Spontaneous
  Country: RU (occurrence: RU)
  Receive Date: 20190531
  Receipt Date: 20191023
  Transmission Date: 20200122
  Serious: Yes (Other)
  Sender: FDA-Public Use
  Company Number: RU-CELGENEUS-RUS-20190509581

PATIENT
  Age: 85 Year
  Sex: Female
  Weight: 57.6 kg

DRUGS (28)
  1. ALLOPURINOL. [Concomitant]
     Active Substance: ALLOPURINOL
     Dosage: 300 MILLIGRAM
     Route: 048
     Dates: start: 20190322
  2. OMEZ [Concomitant]
     Active Substance: OMEPRAZOLE
     Indication: PROPHYLAXIS
     Dosage: 5 MILLILITER
     Route: 048
     Dates: start: 20190318, end: 20190321
  3. OMEZ [Concomitant]
     Active Substance: OMEPRAZOLE
     Indication: STRESS ULCER
     Dosage: 4 MILLILITER
     Route: 048
     Dates: start: 20190322, end: 20190403
  4. CHOLINE ALFOSCERATE [Concomitant]
     Active Substance: CHOLINE ALFOSCERATE
     Indication: REHABILITATION THERAPY
     Dosage: 5 MILLILITER
     Route: 048
     Dates: start: 20190404
  5. RIVAROXABAN [Concomitant]
     Active Substance: RIVAROXABAN
     Indication: REHABILITATION THERAPY
  6. ALLOPURINOL. [Concomitant]
     Active Substance: ALLOPURINOL
     Indication: PROPHYLAXIS
     Dosage: 300 MILLIGRAM
     Route: 048
     Dates: start: 20171207, end: 20171222
  7. ALLOPURINOL. [Concomitant]
     Active Substance: ALLOPURINOL
     Indication: HYPERURICAEMIA
     Dosage: 300 MILLIGRAM
     Route: 048
     Dates: start: 20190318, end: 20190321
  8. ACETYLSALICYLIC ACID [Concomitant]
     Active Substance: ASPIRIN
     Indication: CORONARY ARTERY DISEASE
  9. ENALAPRIL [Concomitant]
     Active Substance: ENALAPRIL
     Indication: HYPERTENSION
  10. MEXIDOL [Concomitant]
     Active Substance: EMOXYPINE SUCCINATE
     Indication: CEREBROVASCULAR ACCIDENT
     Dosage: 5 MILLILITER
     Route: 048
     Dates: start: 20190318, end: 20190321
  11. ATORVASTATIN [Concomitant]
     Active Substance: ATORVASTATIN
     Indication: ARTERIOSCLEROSIS
     Dosage: 400 MILLILITER
     Route: 041
     Dates: start: 20190322, end: 20190403
  12. VENETOCLAX. [Concomitant]
     Active Substance: VENETOCLAX
     Route: 065
  13. LORISTA [Concomitant]
     Active Substance: LOSARTAN POTASSIUM
     Indication: HYPERTENSION
     Dosage: 100 MILLIGRAM
     Route: 048
     Dates: start: 1997
  14. ENALAPRIL [Concomitant]
     Active Substance: ENALAPRIL
     Indication: ANGINA PECTORIS
     Dosage: 40 MILLIGRAM
     Route: 048
     Dates: start: 20171220
  15. ERTAPENEM. [Concomitant]
     Active Substance: ERTAPENEM SODIUM
     Indication: ANTIBIOTIC PROPHYLAXIS
     Dosage: 1000 MILLIGRAM
     Route: 041
     Dates: start: 20190322, end: 20190403
  16. ENOXAPARIN SODIUM. [Concomitant]
     Active Substance: ENOXAPARIN SODIUM
     Indication: MESENTERIC VEIN THROMBOSIS
     Dosage: 5 MILLILITER
     Route: 058
     Dates: start: 20190322, end: 20190403
  17. AZACITIDINE. [Suspect]
     Active Substance: AZACITIDINE
     Dosage: 75 MILLIGRAM/SQ. METER
     Route: 058
     Dates: start: 20190717
  18. VENETOCLAX. [Concomitant]
     Active Substance: VENETOCLAX
     Indication: ACUTE MYELOID LEUKAEMIA
     Route: 065
  19. ACETYLSALICYLIC ACID [Concomitant]
     Active Substance: ASPIRIN
     Indication: ANGINA PECTORIS
     Dosage: 100 MILLIGRAM
     Route: 048
     Dates: start: 1997
  20. OMEZ [Concomitant]
     Active Substance: OMEPRAZOLE
     Dosage: 4 MILLILITER
     Route: 048
     Dates: start: 20190404
  21. ATENOLOL. [Concomitant]
     Active Substance: ATENOLOL
     Indication: CORONARY ARTERY DISEASE
     Dosage: 100 MILLIGRAM
     Route: 048
     Dates: start: 1997
  22. ATENOLOL. [Concomitant]
     Active Substance: ATENOLOL
     Indication: ANGINA PECTORIS
  23. CHOLINE ALFOSCERATE [Concomitant]
     Active Substance: CHOLINE ALFOSCERATE
     Indication: CEREBROVASCULAR ACCIDENT
  24. RIVAROXABAN [Concomitant]
     Active Substance: RIVAROXABAN
     Indication: MESENTERIC VEIN THROMBOSIS
     Dosage: 15 MILLIGRAM
     Route: 048
     Dates: start: 20190404
  25. AZACITIDINE. [Suspect]
     Active Substance: AZACITIDINE
     Indication: ACUTE MYELOID LEUKAEMIA
     Dosage: 75 MILLIGRAM/SQ. METER
     Route: 058
     Dates: start: 20171208, end: 20190430
  26. LORISTA [Concomitant]
     Active Substance: LOSARTAN POTASSIUM
     Indication: CARDIAC FAILURE CHRONIC
  27. MEXIDOL [Concomitant]
     Active Substance: EMOXYPINE SUCCINATE
     Indication: HYPERTENSION
     Dosage: 4 MILLILITER
     Route: 048
     Dates: start: 20190323, end: 20190403
  28. BIFIFORM [Concomitant]
     Active Substance: BIFIDOBACTERIUM LONGUM
     Indication: DYSBIOSIS
     Route: 048
     Dates: start: 20190404, end: 20190418

REACTIONS (1)
  - Adenocarcinoma of colon [Recovered/Resolved]

NARRATIVE: CASE EVENT DATE: 20190424
